FAERS Safety Report 24406260 (Version 2)
Quarter: 2025Q2

REPORT INFORMATION
  Report Type: Spontaneous
  Country: ES (occurrence: ES)
  Receive Date: 20241007
  Receipt Date: 20250624
  Transmission Date: 20250717
  Serious: Yes (Life-Threatening, Hospitalization, Other)
  Sender: MYLAN
  Company Number: None

PATIENT
  Age: 27 Year
  Sex: Male
  Weight: 106.2 kg

DRUGS (8)
  1. ACETAMINOPHEN [Interacting]
     Active Substance: ACETAMINOPHEN
     Indication: Product used for unknown indication
     Dates: start: 20240305, end: 20240305
  2. ACETAMINOPHEN [Interacting]
     Active Substance: ACETAMINOPHEN
     Route: 048
     Dates: start: 20240305, end: 20240305
  3. ACETAMINOPHEN [Interacting]
     Active Substance: ACETAMINOPHEN
     Route: 048
     Dates: start: 20240305, end: 20240305
  4. ACETAMINOPHEN [Interacting]
     Active Substance: ACETAMINOPHEN
     Dates: start: 20240305, end: 20240305
  5. BROMAZEPAM [Interacting]
     Active Substance: BROMAZEPAM
     Indication: Product used for unknown indication
     Dates: start: 20240305, end: 20240305
  6. BROMAZEPAM [Interacting]
     Active Substance: BROMAZEPAM
     Route: 048
     Dates: start: 20240305, end: 20240305
  7. BROMAZEPAM [Interacting]
     Active Substance: BROMAZEPAM
     Route: 048
     Dates: start: 20240305, end: 20240305
  8. BROMAZEPAM [Interacting]
     Active Substance: BROMAZEPAM
     Dates: start: 20240305, end: 20240305

REACTIONS (5)
  - Hepatocellular injury [Recovered/Resolved]
  - Hypocoagulable state [Recovered/Resolved]
  - Intentional overdose [Recovered/Resolved]
  - Suicidal ideation [Unknown]
  - Drug interaction [Unknown]

NARRATIVE: CASE EVENT DATE: 20240305
